FAERS Safety Report 25014856 (Version 1)
Quarter: 2025Q1

REPORT INFORMATION
  Report Type: Spontaneous
  Country: US (occurrence: US)
  Receive Date: 20250226
  Receipt Date: 20250226
  Transmission Date: 20250409
  Serious: No
  Sender: GLAXOSMITHKLINE
  Company Number: US-GSK-US2025022390

PATIENT
  Age: 52 Year
  Sex: Female

DRUGS (1)
  1. NUCALA [Suspect]
     Active Substance: MEPOLIZUMAB
     Indication: Product used for unknown indication

REACTIONS (4)
  - Exposure via skin contact [Recovered/Resolved]
  - Wrong technique in device usage process [Unknown]
  - Accidental exposure to product [Unknown]
  - Product dose omission issue [Unknown]

NARRATIVE: CASE EVENT DATE: 20250220
